FAERS Safety Report 19191667 (Version 13)
Quarter: 2024Q4

REPORT INFORMATION
  Report Type: Spontaneous
  Country: US (occurrence: US)
  Receive Date: 20210428
  Receipt Date: 20241126
  Transmission Date: 20250114
  Serious: Yes (Other)
  Sender: PFIZER
  Company Number: US-PFIZER INC-2021432835

PATIENT
  Age: 77 Year
  Sex: Female
  Weight: 93.44 kg

DRUGS (3)
  1. IBRANCE [Suspect]
     Active Substance: PALBOCICLIB
     Indication: Breast cancer female
     Dosage: 75 MG, CYCLIC (1 PO (ORAL) QD (EVERYDAY)X21 DAYS, REST X7 DAYS THEN REPEAT)
     Route: 048
     Dates: start: 20210325
  2. XARELTO [Concomitant]
     Active Substance: RIVAROXABAN
     Indication: Anticoagulant therapy
     Dosage: UNK
  3. FASLODEX [Concomitant]
     Active Substance: FULVESTRANT
     Dosage: UNK (EVERY FOUR WEEK)

REACTIONS (2)
  - Femur fracture [Unknown]
  - Diarrhoea [Recovering/Resolving]
